FAERS Safety Report 16954119 (Version 3)
Quarter: 2020Q1

REPORT INFORMATION
  Report Type: Spontaneous
  Country: JP (occurrence: JP)
  Receive Date: 20191023
  Receipt Date: 20200103
  Transmission Date: 20200409
  Serious: Yes (Death, Life-Threatening, Hospitalization, Other)
  Sender: FDA-Public Use
  Company Number: JP-ARBOR PHARMACEUTICALS, LLC-JP-2019ARB001491

PATIENT
  Age: 77 Year
  Sex: Male
  Weight: 48 kg

DRUGS (3)
  1. SULBACILLIN [Concomitant]
     Active Substance: AMPICILLIN SODIUM\SULBACTAM SODIUM
     Indication: PNEUMONIA ASPIRATION
     Dosage: UNK
     Dates: start: 20191007
  2. BETAMETHASONE. [Concomitant]
     Active Substance: BETAMETHASONE
     Indication: BRAIN NEOPLASM
     Dosage: 8 MG, 1 D
     Route: 048
     Dates: start: 20190803, end: 20191006
  3. GLIADEL [Suspect]
     Active Substance: CARMUSTINE
     Indication: MALIGNANT GLIOMA
     Dosage: 7.7 MG, 6 TOTAL
     Dates: start: 20191004, end: 20191010

REACTIONS (3)
  - CNS ventriculitis [Not Recovered/Not Resolved]
  - Sepsis [Fatal]
  - Stress cardiomyopathy [Not Recovered/Not Resolved]

NARRATIVE: CASE EVENT DATE: 2019
